FAERS Safety Report 6548125-9 (Version None)
Quarter: 2010Q1

REPORT INFORMATION
  Report Type: 
  Country: None (occurrence: None)
  Receive Date: 20100124
  Receipt Date: 20090114
  Transmission Date: 20100710
  Serious: No
  Sender: FDA-Public Use
  Company Number: US-ALLERGAN-0900425US

PATIENT
  Sex: Female

DRUGS (6)
  1. RESTASIS [Suspect]
     Indication: EYE SWELLING
     Dosage: 1 GTT, BID
     Route: 047
     Dates: start: 20081101
  2. RESTASIS [Suspect]
     Indication: OCULAR HYPERAEMIA
  3. RESTASIS [Suspect]
     Indication: IMMUNE SYSTEM DISORDER
  4. LOTEMAX [Concomitant]
     Indication: EYE INFLAMMATION
     Dosage: UNK, UNK
     Dates: start: 20081201
  5. REFRESH TEARS [Concomitant]
     Indication: DRUG USE FOR UNKNOWN INDICATION
     Dosage: 1 GTT, PRN
     Route: 047
  6. GENTEAL [Concomitant]
     Indication: DRY EYE
     Dosage: 1 GTT, PRN
     Route: 047

REACTIONS (2)
  - DRUG INEFFECTIVE [None]
  - EYE PAIN [None]
